FAERS Safety Report 25328201 (Version 3)
Quarter: 2025Q3

REPORT INFORMATION
  Report Type: Report from Study
  Country: US (occurrence: US)
  Receive Date: 20250518
  Receipt Date: 20250705
  Transmission Date: 20251021
  Serious: Yes (Other)
  Sender: AIMMUNE
  Company Number: US-ZENPEP LLC-2025AIMT00464

PATIENT

DRUGS (17)
  1. ZENPEP [Suspect]
     Active Substance: PANCRELIPASE AMYLASE\PANCRELIPASE LIPASE\PANCRELIPASE PROTEASE
     Indication: Pancreatic failure
     Route: 048
     Dates: start: 20221220
  2. ZENPEP [Suspect]
     Active Substance: PANCRELIPASE AMYLASE\PANCRELIPASE LIPASE\PANCRELIPASE PROTEASE
     Indication: Pancreatic carcinoma
     Route: 048
  3. LAROTRECTINIB [Concomitant]
     Active Substance: LAROTRECTINIB
     Indication: Pancreatic carcinoma
     Dosage: 100 MG, 2X/DAY
     Dates: start: 20221013
  4. CREON [Concomitant]
     Active Substance: PANCRELIPASE AMYLASE\PANCRELIPASE LIPASE\PANCRELIPASE PROTEASE
     Indication: Product used for unknown indication
  5. CYMBALTA [Concomitant]
     Active Substance: DULOXETINE HYDROCHLORIDE
     Indication: Product used for unknown indication
     Dosage: 30 MG, 1X/DAY FOR 7 DAYS
     Route: 048
  6. CYMBALTA [Concomitant]
     Active Substance: DULOXETINE HYDROCHLORIDE
     Dosage: 60 MG, 1X/DAY FOR 23 DAYS
     Route: 048
  7. VITAMINS NOS [Concomitant]
     Active Substance: VITAMINS
     Indication: Product used for unknown indication
     Route: 048
  8. NARCAN [Concomitant]
     Active Substance: NALOXONE HYDROCHLORIDE
     Indication: Prophylaxis
     Route: 006
  9. ZOFRAN [Concomitant]
     Active Substance: ONDANSETRON HYDROCHLORIDE
     Indication: Nausea
     Dosage: 8 MG, EVERY 8 HOURS AS NEEDED
     Route: 048
  10. ROXICODONE [Concomitant]
     Active Substance: OXYCODONE HYDROCHLORIDE
     Indication: Cancer pain
     Route: 048
  11. ROXICODONE [Concomitant]
     Active Substance: OXYCODONE HYDROCHLORIDE
     Indication: Arthralgia
  12. FLEXERIL [Concomitant]
     Active Substance: CYCLOBENZAPRINE HYDROCHLORIDE
     Indication: Product used for unknown indication
     Dosage: 10 MG, 3X/DAY
     Route: 048
  13. MIRALAX [Concomitant]
     Active Substance: POLYETHYLENE GLYCOL 3350
     Indication: Product used for unknown indication
     Dosage: 17 MG, 1X/DAY
     Route: 048
  14. COMPAZINE [Concomitant]
     Active Substance: PROCHLORPERAZINE MALEATE
     Indication: Nausea
     Dosage: 10 MG, EVERY 6 HOURS AS NEEDED
     Route: 048
  15. REPOTRECTINIB [Concomitant]
     Active Substance: REPOTRECTINIB
     Indication: Pancreatic carcinoma
     Dosage: 160 MG, 1X/DAY
     Route: 048
     Dates: start: 20240923, end: 20241007
  16. REPOTRECTINIB [Concomitant]
     Active Substance: REPOTRECTINIB
     Dosage: 160 MG, 2X/DAY
     Route: 048
     Dates: start: 20241007
  17. PERI-COLACE [DOCUSATE SODIUM;SENNOSIDE A+B] [Concomitant]
     Indication: Product used for unknown indication
     Route: 048

REACTIONS (11)
  - Lung adenocarcinoma [Unknown]
  - Failure to thrive [Recovered/Resolved]
  - Bile duct stenosis [Unknown]
  - Gastrooesophageal reflux disease [Unknown]
  - Pancreatic leak [Recovered/Resolved]
  - Vomiting [Unknown]
  - Malnutrition [Unknown]
  - Liver function test increased [Unknown]
  - Arthralgia [Unknown]
  - Iron deficiency anaemia [Unknown]
  - Diarrhoea [Unknown]

NARRATIVE: CASE EVENT DATE: 20250212
